FAERS Safety Report 6546166-9 (Version None)
Quarter: 2010Q1

REPORT INFORMATION
  Report Type: 
  Country: None (occurrence: None)
  Receive Date: 20100111
  Receipt Date: 20091228
  Transmission Date: 20100710
  Serious: Yes (Hospitalization)
  Sender: FDA-Public Use
  Company Number: 20091228CINRY1326

PATIENT
  Age: 29 Year
  Sex: Female

DRUGS (4)
  1. CINRYZE [Suspect]
     Indication: HEREDITARY ANGIOEDEMA
     Dosage: 1000 UNIT , 2 IN 1 WK, INTRAVENOUS; 1000 UNITS, 3 IN 1 WK, INTRAVENOUS
     Route: 042
     Dates: start: 20090501, end: 20091101
  2. CINRYZE [Suspect]
     Indication: PROPHYLAXIS
     Dosage: 1000 UNIT , 2 IN 1 WK, INTRAVENOUS; 1000 UNITS, 3 IN 1 WK, INTRAVENOUS
     Route: 042
     Dates: start: 20090501, end: 20091101
  3. CINRYZE [Suspect]
     Indication: HEREDITARY ANGIOEDEMA
     Dosage: 1000 UNIT , 2 IN 1 WK, INTRAVENOUS; 1000 UNITS, 3 IN 1 WK, INTRAVENOUS
     Route: 042
     Dates: start: 20091101
  4. CINRYZE [Suspect]
     Indication: PROPHYLAXIS
     Dosage: 1000 UNIT , 2 IN 1 WK, INTRAVENOUS; 1000 UNITS, 3 IN 1 WK, INTRAVENOUS
     Route: 042
     Dates: start: 20091101

REACTIONS (7)
  - ABDOMINAL DISCOMFORT [None]
  - BLOOD GLUCOSE INCREASED [None]
  - H1N1 INFLUENZA [None]
  - LIP SWELLING [None]
  - PNEUMONIA [None]
  - SWELLING [None]
  - SWELLING FACE [None]
